FAERS Safety Report 5915193-4 (Version None)
Quarter: 2008Q4

REPORT INFORMATION
  Report Type: 
  Country: None (occurrence: None)
  Receive Date: 20081010
  Receipt Date: 20081001
  Transmission Date: 20090506
  Serious: Yes (Other)
  Sender: FDA-Public Use
  Company Number: ES-JNJFOC-20080903317

PATIENT
  Age: 83 Year
  Sex: Female

DRUGS (2)
  1. INFLIXIMAB [Suspect]
     Indication: RHEUMATOID ARTHRITIS
     Dosage: RECEIVED 3 INFUSIONS
     Route: 042
  2. LEFLUNOMIDE [Concomitant]

REACTIONS (1)
  - DERMATITIS PSORIASIFORM [None]
